FAERS Safety Report 8316570-7 (Version None)
Quarter: 2012Q2

REPORT INFORMATION
  Report Type: 
  Country: None (occurrence: None)
  Receive Date: 20120425
  Receipt Date: 20120425
  Transmission Date: 20120825
  Serious: Yes (Hospitalization)
  Sender: FDA-Public Use
  Company Number: None

PATIENT
  Age: 76 Year
  Sex: Female
  Weight: 76.2 kg

DRUGS (9)
  1. AMLODIPINE BESYLATE AND BENAZEPRIL HYDROCHLORIDE [Suspect]
     Indication: HYPERTENSION
     Dosage: 10/40 MG DAILY ORAL
     Route: 048
     Dates: start: 20120409
  2. PHENYTOIN SODIUM EXTENDED [Concomitant]
  3. HYDRALAZINE HCL [Concomitant]
  4. ASPIRIN [Concomitant]
  5. ISOSORBIDE MONONITRATE [Concomitant]
  6. LORATADINE [Concomitant]
  7. FERROUS SULFATE TAB [Concomitant]
  8. METOPROLOL TARTRATE [Concomitant]
  9. CALCIUM + D3 [Concomitant]

REACTIONS (1)
  - ANGIOEDEMA [None]
